FAERS Safety Report 22764128 (Version 9)
Quarter: 2024Q2

REPORT INFORMATION
  Report Type: Spontaneous
  Country: US (occurrence: US)
  Receive Date: 20230731
  Receipt Date: 20240624
  Transmission Date: 20240716
  Serious: Yes (Other)
  Sender: FDA-Public Use
  Company Number: US-BRISTOL-MYERS SQUIBB COMPANY-2023-106077

PATIENT
  Age: 52 Year
  Sex: Female

DRUGS (7)
  1. SPRYCEL [Suspect]
     Active Substance: DASATINIB
     Indication: Chronic myeloid leukaemia
     Dosage: DAILY
     Route: 048
     Dates: start: 202307, end: 202312
  2. SPRYCEL [Suspect]
     Active Substance: DASATINIB
     Dates: start: 202403
  3. SPRYCEL [Suspect]
     Active Substance: DASATINIB
     Dosage: DAILY
     Route: 048
     Dates: start: 202307, end: 202312
  4. SPRYCEL [Suspect]
     Active Substance: DASATINIB
     Dosage: DAILY
     Route: 048
     Dates: start: 202307, end: 202312
  5. SPRYCEL [Suspect]
     Active Substance: DASATINIB
     Dosage: DAILY
     Route: 048
     Dates: start: 202307, end: 202312
  6. SPRYCEL [Suspect]
     Active Substance: DASATINIB
     Dosage: DAILY
     Route: 048
     Dates: start: 202307, end: 202312
  7. SPRYCEL [Suspect]
     Active Substance: DASATINIB
     Dosage: DAILY
     Route: 048
     Dates: start: 202307

REACTIONS (15)
  - Palmar-plantar erythrodysaesthesia syndrome [Unknown]
  - Fatigue [Unknown]
  - Neuropathy peripheral [Unknown]
  - Scab [Unknown]
  - Impaired healing [Unknown]
  - Fluid retention [Unknown]
  - Insomnia [Unknown]
  - Alopecia [Unknown]
  - Pruritus [Unknown]
  - Peripheral swelling [Unknown]
  - Malaise [Unknown]
  - Asthenia [Unknown]
  - Oedema [Unknown]
  - Swelling [Unknown]
  - Loss of personal independence in daily activities [Unknown]

NARRATIVE: CASE EVENT DATE: 20240601
